FAERS Safety Report 6832425-9 (Version None)
Quarter: 2010Q3

REPORT INFORMATION
  Report Type: 
  Country: None (occurrence: None)
  Receive Date: 20100712
  Receipt Date: 20070308
  Transmission Date: 20110219
  Serious: No
  Sender: FDA-Public Use
  Company Number: US-PFIZER INC-2007021322

PATIENT
  Sex: Female
  Weight: 56.25 kg

DRUGS (4)
  1. CHANTIX [Suspect]
     Indication: SMOKING CESSATION THERAPY
     Dates: start: 20070201
  2. ANTI-DIABETICS [Concomitant]
     Indication: DIABETES MELLITUS
  3. ALL OTHER THERAPEUTIC PRODUCTS [Concomitant]
     Route: 055
  4. BUPROPION [Concomitant]

REACTIONS (2)
  - FATIGUE [None]
  - FLATULENCE [None]
